FAERS Safety Report 10279856 (Version 2)
Quarter: 2014Q3

REPORT INFORMATION
  Report Type: Spontaneous
  Country: JP (occurrence: JP)
  Receive Date: 20140707
  Receipt Date: 20140707
  Transmission Date: 20150326
  Serious: Yes (Hospitalization)
  Sender: FDA-Public Use
  Company Number: PHHY2014JP052901

PATIENT
  Age: 70 Year
  Sex: Female

DRUGS (19)
  1. BAYASPIRIN [Concomitant]
     Active Substance: ASPIRIN
     Dosage: UNK UKN, UNK
     Dates: start: 201404
  2. BUP-4 [Concomitant]
     Active Substance: PROPIVERINE
     Dosage: UNK UKN, UNK
     Dates: start: 201404
  3. MAGNESIUM OXIDE. [Concomitant]
     Active Substance: MAGNESIUM OXIDE
     Dosage: UNK UKN, UNK
     Dates: start: 201404
  4. REMERON [Concomitant]
     Active Substance: MIRTAZAPINE
     Dosage: UNK UKN, UNK
     Dates: start: 201404
  5. HALCION [Concomitant]
     Active Substance: TRIAZOLAM
     Dosage: UNK UKN, UNK
     Dates: start: 201404
  6. RIVASTIGMIN [Suspect]
     Active Substance: RIVASTIGMINE
     Indication: DEMENTIA ALZHEIMER^S TYPE
     Dosage: 4.5MG (1.9 MG/24 HOURS) ONCE A DAY
     Route: 062
     Dates: start: 20140307, end: 20140330
  7. MENESIT [Concomitant]
     Active Substance: CARBIDOPA\LEVODOPA
     Dosage: UNK UKN, UNK
     Dates: start: 201404
  8. SYMMETREL [Concomitant]
     Active Substance: AMANTADINE HYDROCHLORIDE
     Dosage: UNK UKN, UNK
     Dates: start: 201404
  9. RIVASTIGMIN [Suspect]
     Active Substance: RIVASTIGMINE
     Dosage: 13.5 MG, QD
     Route: 062
     Dates: start: 20140421, end: 201404
  10. TRYPTANOL//AMITRIPTYLINE HYDROCHLORIDE [Concomitant]
     Active Substance: AMITRIPTYLINE HYDROCHLORIDE
     Dosage: UNK UKN, UNK
     Dates: start: 201404
  11. RIVASTIGMIN [Suspect]
     Active Substance: RIVASTIGMINE
     Dosage: 9 MG (4.6 MG/24 HOURS) ONCE A DAY
     Route: 062
     Dates: start: 20140331, end: 20140420
  12. AMARYL [Concomitant]
     Active Substance: GLIMEPIRIDE
     Dosage: UNK UKN, UNK
     Dates: start: 201404
  13. SENNA [Concomitant]
     Active Substance: SENNA LEAF\SENNOSIDES\SENNOSIDES A AND B
     Dosage: UNK UKN, UNK
     Dates: start: 201404
  14. CARBOCISTEINE [Concomitant]
     Active Substance: CARBOCYSTEINE
     Dosage: UNK UKN, UNK
     Dates: start: 201404
  15. JANUVIA [Concomitant]
     Active Substance: SITAGLIPTIN PHOSPHATE
     Dosage: UNK UKN, UNK
     Dates: start: 201404
  16. TSUMURA CHOREITO [Concomitant]
     Active Substance: UNSPECIFIED INGREDIENT
     Dosage: UNK UKN, UNK
     Dates: start: 201404
  17. ROZEREM [Concomitant]
     Active Substance: RAMELTEON
     Dosage: UNK UKN, UNK
     Dates: start: 201404
  18. CILOSTAZOL. [Concomitant]
     Active Substance: CILOSTAZOL
     Dosage: UNK UKN, UNK
     Dates: start: 201404
  19. MIRAPEX [Concomitant]
     Active Substance: PRAMIPEXOLE DIHYDROCHLORIDE
     Dosage: UNK UKN, UNK
     Dates: start: 201404

REACTIONS (1)
  - Dysphagia [Not Recovered/Not Resolved]

NARRATIVE: CASE EVENT DATE: 20140409
